FAERS Safety Report 8486055-6 (Version None)
Quarter: 2012Q2

REPORT INFORMATION
  Report Type: 
  Country: None (occurrence: None)
  Receive Date: 20120626
  Receipt Date: 20120616
  Transmission Date: 20120825
  Serious: Yes (Other)
  Sender: FDA-Public Use
  Company Number: AUR-APL-2012-02677

PATIENT
  Age: 35 Year
  Sex: Female

DRUGS (3)
  1. RISPERIDONE [Suspect]
     Indication: PSYCHOTIC DISORDER
     Dosage: (4 MG, 1 D)
  2. CLOZAPINE [Suspect]
     Indication: SCHIZOPHRENIA, PARANOID TYPE
     Dosage: (25 MG, 1 D) ; (400 MG) ; (200 MG)
  3. VALPROIC ACID [Suspect]
     Indication: GRAND MAL CONVULSION
     Dosage: (1000 MG, 1 D)

REACTIONS (4)
  - ASTERIXIS [None]
  - PSYCHIATRIC SYMPTOM [None]
  - DRUG INTERACTION [None]
  - GRAND MAL CONVULSION [None]
